FAERS Safety Report 11077320 (Version 2)
Quarter: 2017Q2

REPORT INFORMATION
  Report Type: Spontaneous
  Country: US (occurrence: US)
  Receive Date: 20150429
  Receipt Date: 20170614
  Transmission Date: 20170829
  Serious: No
  Sender: FDA-Public Use
  Company Number: US-009507513-1504USA021826

PATIENT
  Sex: Male

DRUGS (2)
  1. BELSOMRA [Suspect]
     Active Substance: SUVOREXANT
     Dosage: ANOTHER 10 MG AT ABOUT 1:00 OR 2:00 AM
     Route: 048
     Dates: start: 20150419, end: 20150419
  2. BELSOMRA [Suspect]
     Active Substance: SUVOREXANT
     Indication: INSOMNIA
     Dosage: 10 MG AROUND MIDNIGHT
     Route: 048
     Dates: start: 20150418, end: 20150418

REACTIONS (4)
  - Drug effect incomplete [Unknown]
  - Nightmare [Recovered/Resolved]
  - Inappropriate schedule of drug administration [Unknown]
  - Poor quality sleep [Recovered/Resolved]

NARRATIVE: CASE EVENT DATE: 20150419
